FAERS Safety Report 8683352 (Version 3)
Quarter: 2013Q4

REPORT INFORMATION
  Report Type: Spontaneous
  Country: US (occurrence: US)
  Receive Date: 20120726
  Receipt Date: 20131101
  Transmission Date: 20140711
  Serious: No
  Sender: FDA-Public Use
  Company Number: US-009507513-2012SP036126

PATIENT
  Age: 30 Year
  Sex: Male

DRUGS (3)
  1. SAPHRIS [Suspect]
     Indication: BIPOLAR DISORDER
     Dosage: 5 MG, QD
     Route: 060
     Dates: start: 20120611, end: 20120612
  2. LITHIUM [Concomitant]
     Dosage: 300 MG, BID
  3. LAMICTAL [Concomitant]
     Dosage: 200 MG, QD

REACTIONS (5)
  - Nausea [Unknown]
  - Dizziness [Recovered/Resolved]
  - Sedation [Recovered/Resolved]
  - Underdose [Unknown]
  - Inappropriate schedule of drug administration [Unknown]
